FAERS Safety Report 4771429-7 (Version None)
Quarter: 2005Q3

REPORT INFORMATION
  Report Type: 
  Country: None (occurrence: None)
  Receive Date: 20050914
  Receipt Date: 20050901
  Transmission Date: 20060218
  Serious: Yes (Life-Threatening)
  Sender: FDA-Public Use
  Company Number: HQWYE456629APR05

PATIENT
  Age: 56 Year
  Sex: Male

DRUGS (11)
  1. MYLOTARG [Suspect]
     Indication: ACUTE MYELOID LEUKAEMIA
     Dosage: 18.9 MG 1X PER 1 DAY, INTRAVENOUS
     Route: 042
     Dates: start: 20050421, end: 20050421
  2. AMPICILLIN [Concomitant]
  3. LEVOFLOXACIN [Concomitant]
  4. DEXAMETHASONE [Concomitant]
  5. CEFEPIME (CEFEPIME) [Concomitant]
  6. TRETINOIN [Concomitant]
  7. TRETINOIN [Concomitant]
  8. VANCOMYCIN [Concomitant]
  9. ALLOPURINOL [Concomitant]
  10. PANTOPRAZOLE SODIUM [Concomitant]
  11. PANTOPRAZOLE SODIUM [Concomitant]

REACTIONS (13)
  - ATELECTASIS [None]
  - BLOOD URIC ACID INCREASED [None]
  - BRADYCARDIA [None]
  - CEREBRAL ARTERY OCCLUSION [None]
  - CEREBRAL HAEMORRHAGE [None]
  - CONVULSION [None]
  - CULTURE URINE POSITIVE [None]
  - DISSEMINATED INTRAVASCULAR COAGULATION [None]
  - ENTEROCOCCAL INFECTION [None]
  - HAEMATURIA [None]
  - HYPERTENSION [None]
  - HYPOXIA [None]
  - PROSTATE CANCER METASTATIC [None]
